FAERS Safety Report 17435815 (Version 2)
Quarter: 2020Q2

REPORT INFORMATION
  Report Type: Report from Study
  Country: None (occurrence: US)
  Receive Date: 20200219
  Receipt Date: 20200511
  Transmission Date: 20200713
  Serious: Yes (Other)
  Sender: FDA-Public Use
  Company Number: US-ABBVIE-20K-163-3279945-00

PATIENT
  Age: 61 Year
  Sex: Female
  Weight: 69 kg

DRUGS (1)
  1. HUMIRA [Suspect]
     Active Substance: ADALIMUMAB
     Indication: RHEUMATOID ARTHRITIS
     Route: 058

REACTIONS (3)
  - Somnolence [Not Recovered/Not Resolved]
  - Viral infection [Recovering/Resolving]
  - Systemic lupus erythematosus [Not Recovered/Not Resolved]

NARRATIVE: CASE EVENT DATE: 202002
